FAERS Safety Report 8021232-X (Version None)
Quarter: 2011Q4

REPORT INFORMATION
  Report Type: 
  Country: None (occurrence: None)
  Receive Date: 20111229
  Receipt Date: 20111209
  Transmission Date: 20120403
  Serious: Yes (Hospitalization)
  Sender: FDA-Public Use
  Company Number: 2011PROUSA00856

PATIENT
  Age: 78 Year
  Sex: Male
  Weight: 89.8 kg

DRUGS (8)
  1. ASPIRIN [Concomitant]
  2. LUPRON [Concomitant]
  3. NUCYNTA [Concomitant]
  4. MEGACE [Concomitant]
  5. PROVENGE [Suspect]
     Indication: PROSTATE CANCER METASTATIC
     Dosage: 250 ML, SINGLE, INTRAVENOUS
     Route: 042
     Dates: start: 20111209, end: 20111209
  6. HYDROCHLOROTHIAZIDE [Concomitant]
  7. SIMVASTATIN [Concomitant]
  8. LISINOPRIL [Concomitant]

REACTIONS (8)
  - HYPERHIDROSIS [None]
  - DIARRHOEA [None]
  - URTICARIA [None]
  - LOSS OF CONSCIOUSNESS [None]
  - RASH [None]
  - CHILLS [None]
  - VOMITING [None]
  - HYPOTENSION [None]
